FAERS Safety Report 7678325-6 (Version None)
Quarter: 2011Q3

REPORT INFORMATION
  Report Type: 
  Country: None (occurrence: None)
  Receive Date: 20110811
  Receipt Date: 20110805
  Transmission Date: 20111222
  Serious: Yes (Death, Life-Threatening, Hospitalization)
  Sender: FDA-Public Use
  Company Number: US-JNJFOC-20080706294

PATIENT
  Age: 45 Year
  Sex: Male
  Weight: 65 kg

DRUGS (25)
  1. TRAZODONE HCL [Concomitant]
     Route: 065
  2. DOXORUBICIN HCL [Suspect]
     Dosage: CYCLE 1. ON DAY 1
     Route: 042
     Dates: start: 20080318
  3. PREDNISONE [Suspect]
     Indication: LYMPHOMA AIDS RELATED
     Dosage: TOTAL DOSE ADMINISTERED 500MG. THE AGENT START DATE WAS 26-JUN-2008 AND END DATE WAS 30-JUN-2008
     Route: 048
     Dates: start: 20080626, end: 20080630
  4. MARINOL [Concomitant]
     Route: 065
  5. METRONIDAZOLE [Concomitant]
     Route: 065
  6. RITUXIMAB [Suspect]
     Dosage: TOTAL DOSE ADMINISTERED IN THIS COURSE WAS 675MG ON 26-JUN-2008
     Route: 042
     Dates: start: 20080626, end: 20080626
  7. CYCLOPHOSPHAMIDE [Suspect]
     Dosage: CYCLE 1
     Route: 042
     Dates: start: 20080318
  8. VINCRISTINE [Suspect]
     Indication: LYMPHOMA AIDS RELATED
     Dosage: CYCLE 1
     Route: 042
     Dates: start: 20080318
  9. ACETAMINOPHEN [Concomitant]
     Route: 065
  10. HYDROMORPHONE HCL [Concomitant]
     Route: 065
  11. REGLAN [Concomitant]
     Route: 065
  12. CYCLOPHOSPHAMIDE [Suspect]
     Indication: LYMPHOMA AIDS RELATED
     Dosage: TOTAL DOSE ADMINISTERED 1350MG AS ON 26-JUN-2008
     Route: 042
     Dates: start: 20080626, end: 20080626
  13. PROMETHAZINE HCL [Concomitant]
     Route: 065
  14. PROTONIX [Concomitant]
     Route: 065
  15. DOXORUBICIN HCL [Suspect]
     Indication: LYMPHOMA AIDS RELATED
     Dosage: ON DAY 1. TOTAL DOSE ADMINISTERED IN THIS COURSE WAS 72 MG ON 26-JUN-2008
     Route: 042
     Dates: start: 20080626, end: 20080626
  16. VINCRISTINE [Suspect]
     Dosage: 0 MG- TOTAL DOSE ADMINISTERED IN THIS COURSE
     Route: 042
  17. PREDNISONE [Suspect]
     Dosage: CYCLE 1
     Route: 048
     Dates: start: 20080318
  18. PROCRIT [Concomitant]
     Route: 065
  19. ATIVAN [Concomitant]
     Route: 065
  20. DAPSONE [Concomitant]
     Route: 065
  21. NEULASTA [Concomitant]
     Route: 065
  22. RITUXIMAB [Suspect]
     Indication: LYMPHOMA AIDS RELATED
     Dosage: CYCLE 1
     Route: 042
     Dates: start: 20080318
  23. COLACE [Concomitant]
     Route: 065
  24. BUSPAR [Concomitant]
     Route: 065
  25. CIPROFLOXACIN [Concomitant]
     Route: 065
     Dates: start: 20080716

REACTIONS (3)
  - ABDOMINAL ABSCESS [None]
  - HYPOKALAEMIA [None]
  - DISEASE PROGRESSION [None]
